FAERS Safety Report 21490293 (Version 1)
Quarter: 2022Q4

REPORT INFORMATION
  Report Type: Spontaneous
  Country: DE (occurrence: DE)
  Receive Date: 20221021
  Receipt Date: 20221021
  Transmission Date: 20230112
  Serious: Yes (Hospitalization)
  Sender: FDA-Public Use
  Company Number: DE-ADRED-06218-01

PATIENT
  Age: 80 Year
  Sex: Female

DRUGS (5)
  1. SIMVASTATIN [Suspect]
     Active Substance: SIMVASTATIN
     Indication: Product used for unknown indication
     Dosage: 20 MILLIGRAM 0-0-1-0, TABLET
     Route: 048
  2. TRIAMTERENE\XIPAMIDE [Suspect]
     Active Substance: TRIAMTERENE\XIPAMIDE
     Indication: Product used for unknown indication
     Dosage: 30|10 MG, 0.5-0-0-0, TABLET
     Route: 048
  3. ASPIRIN [Concomitant]
     Active Substance: ASPIRIN
     Indication: Product used for unknown indication
     Dosage: 100 MILLIGRAM 0-0-1-0, TABLET
     Route: 048
  4. ALLOPURINOL [Concomitant]
     Active Substance: ALLOPURINOL
     Indication: Product used for unknown indication
     Dosage: 100 MILLIGRAM, 1-0-0-0, TABLET
     Route: 048
  5. MIRTAZAPINE [Concomitant]
     Active Substance: MIRTAZAPINE
     Indication: Product used for unknown indication
     Dosage: 15 MILLIGRAM 0-0-0.5-0, TABLET
     Route: 048

REACTIONS (9)
  - Abdominal pain [Unknown]
  - Hepatic enzyme increased [Unknown]
  - Electrolyte imbalance [Unknown]
  - Hyponatraemia [Unknown]
  - Musculoskeletal pain [Unknown]
  - General physical health deterioration [Unknown]
  - Biliary colic [Unknown]
  - Fatigue [Unknown]
  - Abdominal pain upper [Unknown]
